FAERS Safety Report 24108919 (Version 1)
Quarter: 2024Q3

REPORT INFORMATION
  Report Type: Spontaneous
  Country: BR (occurrence: BR)
  Receive Date: 20240718
  Receipt Date: 20240718
  Transmission Date: 20241016
  Serious: Yes (Death)
  Sender: ROCHE
  Company Number: BR-ROCHE-3111468

PATIENT
  Age: 71 Year
  Sex: Male

DRUGS (2)
  1. BEVACIZUMAB [Suspect]
     Active Substance: BEVACIZUMAB
     Indication: Hepatocellular carcinoma
     Route: 042
     Dates: start: 202011
  2. ATEZOLIZUMAB [Suspect]
     Active Substance: ATEZOLIZUMAB
     Indication: Hepatocellular carcinoma
     Route: 042
     Dates: start: 202011

REACTIONS (5)
  - Blood creatinine increased [Unknown]
  - Blood urea increased [Unknown]
  - Proteinuria [Unknown]
  - Blood pressure increased [Unknown]
  - Acute myocardial infarction [Fatal]

NARRATIVE: CASE EVENT DATE: 20210801
